FAERS Safety Report 15854119 (Version 1)
Quarter: 2019Q1

REPORT INFORMATION
  Report Type: Spontaneous
  Country: RO (occurrence: RO)
  Receive Date: 20190122
  Receipt Date: 20190122
  Transmission Date: 20190417
  Serious: Yes (Death)
  Sender: FDA-Public Use
  Company Number: RO-PFIZER INC-2019028732

PATIENT
  Age: 66 Year
  Sex: Female
  Weight: 58 kg

DRUGS (2)
  1. SUTENT [Suspect]
     Active Substance: SUNITINIB MALATE
     Indication: RENAL NEOPLASM
     Dosage: 50 MG, CYCLIC (28 DAYS ON/14 DAYS OFF)
     Dates: start: 20180501
  2. SEVREDOL [Concomitant]
     Active Substance: MORPHINE
     Dosage: 20 MG, 3X/DAY (MORNING NOON AND EVENING)

REACTIONS (1)
  - Death [Fatal]

NARRATIVE: CASE EVENT DATE: 20190109
